FAERS Safety Report 8853049 (Version 1)
Quarter: 2012Q4

REPORT INFORMATION
  Report Type: 
  Country: BR (occurrence: BR)
  Receive Date: 20121022
  Receipt Date: 20121022
  Transmission Date: 20130627
  Serious: Yes (Other)
  Sender: FDA-Public Use
  Company Number: BR-ASTRAZENECA-2012SE27418

PATIENT
  Age: 68 Year
  Sex: Female

DRUGS (2)
  1. ATACAND COMB [Suspect]
     Indication: HYPERTENSION
     Dosage: 16/5 MG
     Route: 048
     Dates: start: 2008
  2. SELOZOK [Suspect]
     Indication: HYPERTENSION
     Route: 048
     Dates: start: 2002

REACTIONS (2)
  - Infarction [Recovered/Resolved]
  - Gastric disorder [Unknown]
